FAERS Safety Report 5956556-0 (Version None)
Quarter: 2008Q4

REPORT INFORMATION
  Report Type: 
  Country: None (occurrence: None)
  Receive Date: 20081114
  Receipt Date: 20081114
  Transmission Date: 20090506
  Serious: No
  Sender: FDA-Public Use
  Company Number: None

PATIENT

DRUGS (1)
  1. CENTRUM MULTIVITAMINS/ MULT NEW FORMULATION WYETH LABS [Suspect]
     Indication: VITAMIN SUPPLEMENTATION
     Dosage: 1 TAB ONCE DAILLY PO
     Route: 048

REACTIONS (3)
  - ABDOMINAL PAIN UPPER [None]
  - NAUSEA [None]
  - PRODUCT QUALITY ISSUE [None]
